FAERS Safety Report 7368599-3 (Version None)
Quarter: 2011Q1

REPORT INFORMATION
  Report Type: 
  Country: None (occurrence: None)
  Receive Date: 20110321
  Receipt Date: 20110321
  Transmission Date: 20110831
  Serious: Yes (Life-Threatening, Hospitalization, Disabling)
  Sender: FDA-Public Use
  Company Number: None

PATIENT
  Age: 58 Year
  Sex: Male
  Weight: 105 kg

DRUGS (2)
  1. AMPHOTERICIN B [Suspect]
     Indication: FUNGAL INFECTION
     Dosage: 300 MG MWF IV BOLUS
     Route: 040
     Dates: start: 20110302, end: 20110314
  2. AMPHOTERICIN B [Suspect]

REACTIONS (5)
  - PNEUMONIA [None]
  - RENAL FAILURE ACUTE [None]
  - MEDICATION ERROR [None]
  - NAUSEA [None]
  - VOMITING [None]
